FAERS Safety Report 9506678 (Version 1)
Quarter: 2013Q3

REPORT INFORMATION
  Report Type: Spontaneous
  Country: US (occurrence: US)
  Receive Date: 20130908
  Receipt Date: 20130908
  Transmission Date: 20140515
  Serious: No
  Sender: FDA-Public Use
  Company Number: US-TEVA-430713USA

PATIENT
  Age: 72 Year
  Sex: Female
  Weight: 68.1 kg

DRUGS (2)
  1. PROAIR HFA [Suspect]
     Dosage: 1-2 PUFFS EVERY 4 HOURS PRN
     Route: 055
  2. SYMBICORT [Concomitant]
     Indication: CHRONIC OBSTRUCTIVE PULMONARY DISEASE

REACTIONS (4)
  - Throat irritation [Not Recovered/Not Resolved]
  - Dry throat [Not Recovered/Not Resolved]
  - Drug ineffective [Not Recovered/Not Resolved]
  - Dyspnoea [Not Recovered/Not Resolved]
